APPROVED DRUG PRODUCT: HYTONE
Active Ingredient: HYDROCORTISONE
Strength: 2.5% **Federal Register determination that product was not discontinued or withdrawn for safety or effectiveness reasons**
Dosage Form/Route: OINTMENT;TOPICAL
Application: A080474 | Product #004
Applicant: DERMIK LABORATORIES DIV AVENTIS PHARMACEUTICALS INC
Approved: Approved Prior to Jan 1, 1982 | RLD: Yes | RS: No | Type: DISCN